FAERS Safety Report 8355175-9 (Version None)
Quarter: 2012Q2

REPORT INFORMATION
  Report Type: 
  Country: None (occurrence: None)
  Receive Date: 20120510
  Receipt Date: 20120427
  Transmission Date: 20120825
  Serious: No
  Sender: FDA-Public Use
  Company Number: 2012SP022662

PATIENT
  Age: 52 Year
  Sex: Male

DRUGS (1)
  1. KEIMAX (CEFTIBUTEN /01166201/) [Suspect]
     Indication: UPPER RESPIRATORY TRACT INFECTION
     Dosage: 400 MG;QD; PO
     Route: 048
     Dates: start: 20120426, end: 20120426

REACTIONS (2)
  - FLATULENCE [None]
  - ABDOMINAL PAIN [None]
